FAERS Safety Report 7741522-5 (Version None)
Quarter: 2011Q3

REPORT INFORMATION
  Report Type: 
  Country: None (occurrence: None)
  Receive Date: 20110909
  Receipt Date: 20110831
  Transmission Date: 20111222
  Serious: Yes (Other)
  Sender: FDA-Public Use
  Company Number: US-RB-032079-11

PATIENT
  Age: 52 Year
  Sex: Female

DRUGS (1)
  1. SUBOXONE [Suspect]
     Indication: PRODUCT USED FOR UNKNOWN INDICATION
     Dosage: SUBLINGUAL FILM; DOSING INFORMATION UNKNOWN
     Route: 065

REACTIONS (9)
  - DRUG WITHDRAWAL SYNDROME [None]
  - THYROID DISORDER [None]
  - ROAD TRAFFIC ACCIDENT [None]
  - NEOPLASM MALIGNANT [None]
  - CRYING [None]
  - APATHY [None]
  - THERAPEUTIC RESPONSE UNEXPECTED [None]
  - UNDERDOSE [None]
  - SNEEZING [None]
